FAERS Safety Report 20058540 (Version 1)
Quarter: 2021Q4

REPORT INFORMATION
  Report Type: Spontaneous
  Country: US (occurrence: US)
  Receive Date: 20211111
  Receipt Date: 20211111
  Transmission Date: 20220303
  Serious: Yes (Other)
  Sender: FDA-Public Use
  Company Number: US-PFIZER INC-202101472190

PATIENT
  Age: 45 Year
  Sex: Female

DRUGS (2)
  1. NIFEDIPINE [Suspect]
     Active Substance: NIFEDIPINE
     Indication: Hypertension
     Dosage: 90 MG, 1X/DAY
  2. NIFEDIPINE [Suspect]
     Active Substance: NIFEDIPINE
     Dosage: UNK

REACTIONS (5)
  - Blood pressure increased [Unknown]
  - Abdominal discomfort [Unknown]
  - Chest discomfort [Unknown]
  - Product administration error [Unknown]
  - Product residue present [Unknown]

NARRATIVE: CASE EVENT DATE: 19840101
